FAERS Safety Report 9056842 (Version 1)
Quarter: 2013Q1

REPORT INFORMATION
  Report Type: Spontaneous
  Country: US (occurrence: US)
  Receive Date: 20130201
  Receipt Date: 20130201
  Transmission Date: 20140127
  Serious: Yes (Other)
  Sender: FDA-Public Use
  Company Number: US-GLAXOSMITHKLINE-A1009940A

PATIENT
  Age: 54 Year
  Sex: Female

DRUGS (3)
  1. TREXIMET [Suspect]
     Indication: MIGRAINE
     Route: 048
     Dates: end: 20130119
  2. SUMATRIPTAN [Suspect]
  3. PROGESTERONE [Concomitant]

REACTIONS (9)
  - Gastric haemorrhage [Not Recovered/Not Resolved]
  - Gastritis erosive [Unknown]
  - Haematochezia [Unknown]
  - Epigastric discomfort [Unknown]
  - Diarrhoea [Unknown]
  - Dyspepsia [Unknown]
  - Migraine [Unknown]
  - Overdose [Unknown]
  - Medication overuse headache [Unknown]
